FAERS Safety Report 20780120 (Version 1)
Quarter: 2022Q2

REPORT INFORMATION
  Report Type: Spontaneous
  Country: US (occurrence: None)
  Receive Date: 20220503
  Receipt Date: 20220503
  Transmission Date: 20220721
  Serious: No
  Sender: FDA-Public Use
  Company Number: 2022A154214

PATIENT
  Sex: Female
  Weight: 72.6 kg

DRUGS (1)
  1. BUDESONIDE\FORMOTEROL [Suspect]
     Active Substance: BUDESONIDE\FORMOTEROL
     Indication: Asthma
     Dosage: 160/4.5, INHALATION, 2 PUFFS TWICE DAILY (2 PUFFS IN THE MORNING AND 2 PUFFS AT NIGHT)
     Route: 055

REACTIONS (2)
  - Intentional device misuse [Unknown]
  - Device malfunction [Unknown]
